FAERS Safety Report 6649355-8 (Version None)
Quarter: 2010Q1

REPORT INFORMATION
  Report Type: 
  Country: None (occurrence: None)
  Receive Date: 20100324
  Receipt Date: 20100311
  Transmission Date: 20100710
  Serious: Yes (Other)
  Sender: FDA-Public Use
  Company Number: PHEH2008US06327

PATIENT
  Sex: Female
  Weight: 73.469 kg

DRUGS (7)
  1. ZOMETA [Suspect]
     Dosage: UNK, Q 6 MONTHS
     Dates: end: 20070101
  2. FEMARA [Concomitant]
     Dosage: UNK
     Dates: end: 20060101
  3. NEXIUM [Concomitant]
     Dosage: UNK
  4. CHEMOTHERAPEUTICS NOS [Concomitant]
  5. FOSAMAX [Concomitant]
  6. CALCIUM [Suspect]
  7. EVISTA [Concomitant]

REACTIONS (14)
  - ANXIETY [None]
  - DEPRESSION [None]
  - DISCOMFORT [None]
  - EMOTIONAL DISTRESS [None]
  - INJURY [None]
  - MASTICATION DISORDER [None]
  - OSTEONECROSIS [None]
  - OSTEOPENIA [None]
  - PAIN [None]
  - PERIODONTAL DISEASE [None]
  - QUALITY OF LIFE DECREASED [None]
  - SCAR [None]
  - TOOTH EXTRACTION [None]
  - TOOTHACHE [None]
